FAERS Safety Report 23176315 (Version 1)
Quarter: 2023Q4

REPORT INFORMATION
  Report Type: Spontaneous
  Country: US (occurrence: US)
  Receive Date: 20231113
  Receipt Date: 20231113
  Transmission Date: 20240110
  Serious: No
  Sender: FDA-Public Use
  Company Number: US-drreddys-SPO/USA/23/0179443

PATIENT

DRUGS (1)
  1. BUPRENORPHINE AND NALOXONE SUBLINGUAL FILM [Suspect]
     Active Substance: BUPRENORPHINE HYDROCHLORIDE\NALOXONE HYDROCHLORIDE
     Indication: Product used for unknown indication
     Route: 060

REACTIONS (8)
  - Withdrawal syndrome [Unknown]
  - Abdominal discomfort [Unknown]
  - Headache [Unknown]
  - Chills [Unknown]
  - Nausea [Unknown]
  - Pain [Unknown]
  - Product quality issue [Unknown]
  - Drug ineffective [Unknown]
